FAERS Safety Report 10634972 (Version 2)
Quarter: 2015Q1

REPORT INFORMATION
  Report Type: Spontaneous
  Country: US (occurrence: US)
  Receive Date: 20141205
  Receipt Date: 20150316
  Transmission Date: 20150720
  Serious: No
  Sender: FDA-Public Use
  Company Number: US-JNJFOC-20141201576

PATIENT
  Sex: Male

DRUGS (2)
  1. RISPERDAL [Suspect]
     Active Substance: RISPERIDONE
     Indication: DEPRESSION
     Route: 048
  2. SEROQUEL [Concomitant]
     Active Substance: QUETIAPINE FUMARATE
     Route: 065

REACTIONS (6)
  - Hyperprolactinaemia [Unknown]
  - Headache [Unknown]
  - Abnormal weight gain [Unknown]
  - Pain [Unknown]
  - Gynaecomastia [Unknown]
  - Galactorrhoea [Unknown]
